FAERS Safety Report 8517604-7 (Version None)
Quarter: 2012Q3

REPORT INFORMATION
  Report Type: 
  Country: None (occurrence: None)
  Receive Date: 20120718
  Receipt Date: 20120709
  Transmission Date: 20120928
  Serious: Yes (Hospitalization)
  Sender: FDA-Public Use
  Company Number: JP-ASTRAZENECA-2012SE47395

PATIENT
  Sex: Female

DRUGS (6)
  1. STROMECTOL [Concomitant]
     Indication: PHARYNGITIS
     Route: 065
     Dates: start: 20120424
  2. CETIRIZINE HCL [Concomitant]
     Indication: PHARYNGITIS
     Route: 065
     Dates: start: 20120424
  3. DESLORATADINE [Concomitant]
     Indication: PHARYNGITIS
     Route: 065
     Dates: start: 20120424
  4. IBUPROFEN [Suspect]
     Indication: PRODUCT USED FOR UNKNOWN INDICATION
     Route: 048
     Dates: start: 20110101, end: 20120524
  5. CANDESARTAN CILEXETIL [Suspect]
     Indication: PRODUCT USED FOR UNKNOWN INDICATION
     Route: 048
     Dates: start: 20120101, end: 20120524
  6. AMOXICILLIN TRIHYDRATE [Concomitant]
     Indication: PHARYNGITIS
     Route: 065
     Dates: start: 20120425

REACTIONS (2)
  - LICHENOID KERATOSIS [None]
  - TOXIC SKIN ERUPTION [None]
